FAERS Safety Report 6094518-6 (Version None)
Quarter: 2009Q1

REPORT INFORMATION
  Report Type: 
  Country: None (occurrence: None)
  Receive Date: 20090226
  Receipt Date: 20090216
  Transmission Date: 20090719
  Serious: Yes (Hospitalization)
  Sender: FDA-Public Use
  Company Number: FR-GILEAD-2009-0019780

PATIENT
  Sex: Male
  Weight: 46 kg

DRUGS (11)
  1. TRUVADA [Suspect]
     Indication: HIV INFECTION
     Dates: start: 20081223, end: 20090104
  2. EMTRIVA [Suspect]
     Indication: HIV INFECTION
     Dates: start: 20090104
  3. KALETRA [Suspect]
     Indication: HIV INFECTION
     Route: 048
     Dates: start: 20081223
  4. FUZEON [Suspect]
     Indication: HIV INFECTION
     Route: 058
     Dates: start: 20081223
  5. ANSATIPINE [Suspect]
     Indication: MYCOBACTERIUM AVIUM COMPLEX INFECTION
     Dates: start: 20081223
  6. ZECLAR [Suspect]
     Indication: MYCOBACTERIUM AVIUM COMPLEX INFECTION
     Dates: start: 20081121
  7. MYAMBUTOL [Suspect]
     Indication: MYCOBACTERIUM AVIUM COMPLEX INFECTION
     Dates: start: 20081121
  8. FOLINORAL [Suspect]
     Indication: SUPPLEMENTATION THERAPY
     Dates: start: 20081121
  9. BACTRIM [Suspect]
     Indication: ANTIFUNGAL PROPHYLAXIS
     Dates: start: 20081121
  10. TRIFLUCAN [Suspect]
     Indication: FUNGAL INFECTION
     Dates: start: 20090102
  11. CORTANCYL [Suspect]
     Indication: IMMUNE RECONSTITUTION SYNDROME
     Dates: start: 20090120

REACTIONS (9)
  - ANAEMIA [None]
  - CHOLESTASIS [None]
  - CONVULSION [None]
  - CYTOMEGALOVIRUS INFECTION [None]
  - FALL [None]
  - IMMUNE RECONSTITUTION SYNDROME [None]
  - PYREXIA [None]
  - RENAL FAILURE [None]
  - SUBDURAL HAEMATOMA [None]
